FAERS Safety Report 20774597 (Version 1)
Quarter: 2022Q2

REPORT INFORMATION
  Report Type: Spontaneous
  Country: US (occurrence: None)
  Receive Date: 20220430
  Receipt Date: 20220430
  Transmission Date: 20220720
  Serious: No
  Sender: FDA-Public Use
  Company Number: None

PATIENT
  Age: 61 Year
  Sex: Female
  Weight: 90.9 kg

DRUGS (3)
  1. VALSARTAN [Suspect]
     Active Substance: VALSARTAN
     Dosage: FREQUENCY : DAILY;?
     Route: 048
     Dates: start: 20220205, end: 20220222
  2. CETIRIZINE [Concomitant]
     Active Substance: CETIRIZINE HYDROCHLORIDE
     Dates: start: 20200922
  3. IBUPROFEN [Concomitant]
     Active Substance: IBUPROFEN
     Dates: start: 20181016

REACTIONS (4)
  - Muscle spasms [None]
  - Diarrhoea [None]
  - Vision blurred [None]
  - Drug intolerance [None]

NARRATIVE: CASE EVENT DATE: 20220205
